FAERS Safety Report 20773611 (Version 2)
Quarter: 2022Q2

REPORT INFORMATION
  Report Type: Report from Study
  Country: MX (occurrence: MX)
  Receive Date: 20220502
  Receipt Date: 20220614
  Transmission Date: 20220720
  Serious: Yes (Other)
  Sender: FDA-Public Use
  Company Number: MX-NOVARTISPH-NVSC2022MX100361

PATIENT
  Age: 47 Year
  Sex: Female
  Weight: 60 kg

DRUGS (1)
  1. METFORMIN HYDROCHLORIDE\VILDAGLIPTIN [Suspect]
     Active Substance: METFORMIN HYDROCHLORIDE\VILDAGLIPTIN
     Indication: Glucose tolerance impaired
     Dosage: 1 DOSAGE FORM, QD (STARTED 3 YEARS AGO APPROXIMATELY AND STOPPED 1 YEAR AGO)
     Route: 048
     Dates: end: 2021

REACTIONS (9)
  - Syncope [Recovered/Resolved]
  - Hypertension [Recovered/Resolved]
  - Nervous system disorder [Recovered/Resolved]
  - Menopause [Recovered/Resolved]
  - Hot flush [Recovered/Resolved]
  - Hyperhidrosis [Recovered/Resolved]
  - Emotional distress [Recovered/Resolved]
  - Headache [Recovered/Resolved]
  - Off label use [Unknown]

NARRATIVE: CASE EVENT DATE: 20210311
